FAERS Safety Report 20309462 (Version 1)
Quarter: 2022Q1

REPORT INFORMATION
  Report Type: Spontaneous
  Country: None (occurrence: US)
  Receive Date: 20220107
  Receipt Date: 20220107
  Transmission Date: 20220424
  Serious: No
  Sender: FDA-Public Use
  Company Number: US-B.Braun Medical Inc.-2123719

PATIENT
  Age: 42 Year
  Sex: Female

DRUGS (1)
  1. STERILE WATER [Suspect]
     Active Substance: WATER

REACTIONS (3)
  - Neuralgia [Recovered/Resolved]
  - Tremor [Recovered/Resolved]
  - Feeling cold [Recovered/Resolved]
